FAERS Safety Report 23545244 (Version 1)
Quarter: 2024Q1

REPORT INFORMATION
  Report Type: Spontaneous
  Country: US (occurrence: None)
  Receive Date: 20240219
  Receipt Date: 20240219
  Transmission Date: 20240410
  Serious: Yes (Hospitalization)
  Sender: FDA-Public Use
  Company Number: None

PATIENT
  Age: 55 Year
  Sex: Female

DRUGS (1)
  1. GRANIX [Suspect]
     Active Substance: TBO-FILGRASTIM
     Indication: Product used for unknown indication
     Dosage: OTHER QUANTITY : 300 MCG (0.5 ML);?FREQUENCY : AS DIRECTED;?
     Route: 058

REACTIONS (1)
  - Lung carcinoma cell type unspecified stage IV [None]

NARRATIVE: CASE EVENT DATE: 20231205
